FAERS Safety Report 11784753 (Version 1)
Quarter: 2015Q4

REPORT INFORMATION
  Report Type: Report from Study
  Country: US (occurrence: US)
  Receive Date: 20151130
  Receipt Date: 20151130
  Transmission Date: 20160305
  Serious: Yes (Hospitalization)
  Sender: FDA-Public Use
  Company Number: US-ROCHE-1666926

PATIENT
  Age: 54 Year

DRUGS (2)
  1. BEVACIZUMAB [Suspect]
     Active Substance: BEVACIZUMAB
     Indication: BREAST CANCER METASTATIC
     Dosage: 30-90 MIN ON DAYS 1 AND 15, CYCLE 28DAYS?LAST DOSE PRIOR TO SAE ON 01/APR/2010
     Route: 042
     Dates: start: 20100223
  2. PACLITAXEL. [Suspect]
     Active Substance: PACLITAXEL
     Indication: BREAST CANCER METASTATIC
     Dosage: 1 HOUR ON DAYS 1, 8 AND 15, CYCLE 28 DAYS
     Route: 042

REACTIONS (1)
  - Opportunistic infection [Unknown]

NARRATIVE: CASE EVENT DATE: 20100410
